FAERS Safety Report 8032862-3 (Version None)
Quarter: 2012Q1

REPORT INFORMATION
  Report Type: 
  Country: None (occurrence: None)
  Receive Date: 20120110
  Receipt Date: 20120104
  Transmission Date: 20120608
  Serious: No
  Sender: FDA-Public Use
  Company Number: US-BAYER-2012-001578

PATIENT

DRUGS (3)
  1. MULTI-VITAMINS [Concomitant]
     Dosage: 1 DF, QD
     Dates: start: 20070601, end: 20111001
  2. ALEVE (CAPLET) [Suspect]
     Indication: NECK PAIN
     Dosage: UNK
     Dates: start: 20111001
  3. MULTI-VITAMINS [Concomitant]
     Dosage: 1 DF, QD
     Dates: start: 20120101

REACTIONS (2)
  - VISION BLURRED [None]
  - FATIGUE [None]
